FAERS Safety Report 17457059 (Version 1)
Quarter: 2020Q1

REPORT INFORMATION
  Report Type: Spontaneous
  Country: US (occurrence: US)
  Receive Date: 20200225
  Receipt Date: 20200225
  Transmission Date: 20200409
  Serious: No
  Sender: FDA-Public Use
  Company Number: US-SA-2020SA048119

PATIENT
  Age: 43 Year
  Sex: Female

DRUGS (11)
  1. GABAPENTINE [Concomitant]
     Active Substance: GABAPENTIN
  2. LIDOCAINE. [Concomitant]
     Active Substance: LIDOCAINE
  3. DUPIXENT [Suspect]
     Active Substance: DUPILUMAB
     Indication: DERMATITIS ATOPIC
     Dosage: 300 MG, QOW
     Route: 058
     Dates: start: 20190322
  4. EMGALITY [Concomitant]
     Active Substance: GALCANEZUMAB-GNLM
  5. QUETIAPINE. [Concomitant]
     Active Substance: QUETIAPINE
  6. METHOTREXATE. [Concomitant]
     Active Substance: METHOTREXATE
  7. CYCLOBENZAPRINE. [Concomitant]
     Active Substance: CYCLOBENZAPRINE
  8. CELECOXIB. [Concomitant]
     Active Substance: CELECOXIB
  9. CLONAZEPAM. [Concomitant]
     Active Substance: CLONAZEPAM
  10. FOLIC ACID. [Concomitant]
     Active Substance: FOLIC ACID
  11. LAMOTRIGINE. [Concomitant]
     Active Substance: LAMOTRIGINE

REACTIONS (3)
  - Nasopharyngitis [Not Recovered/Not Resolved]
  - Eczema [Not Recovered/Not Resolved]
  - Pyrexia [Not Recovered/Not Resolved]

NARRATIVE: CASE EVENT DATE: 20200210
